FAERS Safety Report 7895063-5 (Version None)
Quarter: 2011Q4

REPORT INFORMATION
  Report Type: 
  Country: None (occurrence: None)
  Receive Date: 20111106
  Receipt Date: 20110823
  Transmission Date: 20120403
  Serious: No
  Sender: FDA-Public Use
  Company Number: US-AMGEN-USASP2011042979

PATIENT
  Age: 63 Year
  Sex: Male

DRUGS (2)
  1. ENBREL [Suspect]
     Indication: PSORIASIS
  2. ENBREL [Suspect]
     Indication: PSORIATIC ARTHROPATHY
     Dosage: 50 MG, QWK
     Dates: start: 20070101

REACTIONS (6)
  - PSORIASIS [None]
  - NEPHROLITHIASIS [None]
  - ARTHRALGIA [None]
  - RESPIRATORY TRACT INFECTION [None]
  - MUSCLE SPASMS [None]
  - SKIN INFECTION [None]
